FAERS Safety Report 9843934 (Version 1)
Quarter: 2013Q4

REPORT INFORMATION
  Report Type: Spontaneous
  Country: US (occurrence: None)
  Receive Date: 20131223
  Receipt Date: 20131223
  Transmission Date: 20140711
  Serious: No
  Sender: FDA-Public Use
  Company Number: 1000049135

PATIENT
  Age: 68 Year
  Sex: Male

DRUGS (5)
  1. LINZESS (LINACLOTIDE) (290 MICROGRAM, CAPSULES) [Suspect]
     Indication: IRRITABLE BOWEL SYNDROME
     Dosage: 290 MCG (290 MCG, 1 IN 1 D), ORAL
     Route: 048
     Dates: start: 20130921, end: 201309
  2. DULCOLAX (BISACODYL) (BISACODYL) [Concomitant]
  3. SINEMET (SINEMET) (SINEMET) [Concomitant]
  4. LEVOTHYROXINE (LEVOTHHYROXINE SODIUM) (LEVOTHYROXINE SODIUM) [Concomitant]
  5. ROPINIIROLE (ROPINIROLE) (ROOPINIROLE) [Concomitant]

REACTIONS (4)
  - Diarrhoea [None]
  - Thirst [None]
  - Drug ineffective [None]
  - Faeces discoloured [None]
